FAERS Safety Report 4361147-1 (Version None)
Quarter: 2004Q2

REPORT INFORMATION
  Report Type: 
  Country: None (occurrence: None)
  Receive Date: 20040511
  Receipt Date: 20031014
  Transmission Date: 20050107
  Serious: Yes (Hospitalization)
  Sender: FDA-Public Use
  Company Number: USA031049786

PATIENT
  Age: 28 Year
  Sex: Male

DRUGS (4)
  1. PROZAC [Suspect]
     Indication: ANXIETY
     Dosage: 40 MG
     Dates: start: 20021201, end: 20030911
  2. PROZAC [Suspect]
     Indication: PANIC REACTION
     Dosage: 40 MG
     Dates: start: 20021201, end: 20030911
  3. CLONAZEPAM [Concomitant]
  4. CODEINE [Concomitant]

REACTIONS (1)
  - PANCREATITIS [None]
